FAERS Safety Report 6872516-X (Version None)
Quarter: 2010Q3

REPORT INFORMATION
  Report Type: 
  Country: None (occurrence: None)
  Receive Date: 20100723
  Receipt Date: 20081105
  Transmission Date: 20110219
  Serious: No
  Sender: FDA-Public Use
  Company Number: US-PFIZER INC-2008078899

PATIENT
  Sex: Male
  Weight: 101.81 kg

DRUGS (2)
  1. CHANTIX [Suspect]
     Indication: SMOKING CESSATION THERAPY
     Route: 048
     Dates: start: 20070101, end: 20080601
  2. ALEVE (CAPLET) [Concomitant]

REACTIONS (3)
  - AGITATION [None]
  - POOR QUALITY SLEEP [None]
  - RESTLESSNESS [None]
